FAERS Safety Report 5685017-1 (Version None)
Quarter: 2008Q1

REPORT INFORMATION
  Report Type: 
  Country: None (occurrence: None)
  Receive Date: 20080328
  Receipt Date: 19970722
  Transmission Date: 20080703
  Serious: Yes (Death, Hospitalization, Other)
  Sender: FDA-Public Use
  Company Number: US-ROCHE-84335

PATIENT
  Age: 77 Year
  Sex: Male
  Weight: 83.9 kg

DRUGS (10)
  1. TICLID [Suspect]
     Route: 065
     Dates: start: 19961227
  2. ATENOL [Concomitant]
     Route: 065
     Dates: end: 19970305
  3. THYROXIN [Concomitant]
     Route: 065
     Dates: end: 19970305
  4. THEOPHYLLINE [Concomitant]
     Route: 065
     Dates: end: 19970305
  5. NORVASC [Concomitant]
     Route: 065
     Dates: end: 19970305
  6. CATAPRES [Concomitant]
     Route: 065
     Dates: end: 19970305
  7. ALBUTEROL [Concomitant]
     Route: 065
     Dates: end: 19970305
  8. IMDUR [Concomitant]
     Route: 065
     Dates: end: 19970305
  9. NEUPOGEN [Concomitant]
     Indication: NEUTROPENIA
     Route: 065
     Dates: start: 19970214
  10. FORTAZ [Concomitant]
     Dates: start: 19970214

REACTIONS (5)
  - APLASTIC ANAEMIA [None]
  - DEATH [None]
  - NEUTROPENIA [None]
  - PLATELET COUNT DECREASED [None]
  - PYREXIA [None]
